FAERS Safety Report 6576153-6 (Version None)
Quarter: 2010Q1

REPORT INFORMATION
  Report Type: 
  Country: None (occurrence: None)
  Receive Date: 20100209
  Receipt Date: 20100129
  Transmission Date: 20100710
  Serious: Yes (Death, Hospitalization)
  Sender: FDA-Public Use
  Company Number: CHPA2010US02454

PATIENT
  Age: 60 Year
  Sex: Female

DRUGS (6)
  1. DEXTROMETHORPHAN HYDROBROMIDE (NCH) [Interacting]
     Indication: UPPER RESPIRATORY TRACT INFECTION
     Dosage: HIGHER THAN RECOMMENDED DOSE
     Route: 048
  2. DEXTROPROPOXYPHENE [Suspect]
     Route: 048
  3. HYDROCODONE BITARTRATE AND ACETAMINOPHEN [Suspect]
     Dosage: UNK, UNK
     Route: 048
  4. ATENOLOL [Concomitant]
  5. FUROSEMIDE [Concomitant]
  6. ESOMEPRAZOLE [Concomitant]

REACTIONS (15)
  - AGGRESSION [None]
  - AGITATION [None]
  - AMNESIA [None]
  - CONFUSIONAL STATE [None]
  - DELIRIUM [None]
  - DELUSION [None]
  - DRUG INTERACTION [None]
  - HALLUCINATION, AUDITORY [None]
  - HALLUCINATION, OLFACTORY [None]
  - HYPERTENSION [None]
  - HYPERTENSIVE HEART DISEASE [None]
  - OFF LABEL USE [None]
  - OVERDOSE [None]
  - PSYCHOTIC DISORDER [None]
  - THINKING ABNORMAL [None]
